FAERS Safety Report 10455515 (Version 2)
Quarter: 2014Q3

REPORT INFORMATION
  Report Type: Spontaneous
  Country: US (occurrence: None)
  Receive Date: 20140912
  Receipt Date: 20140922
  Transmission Date: 20150326
  Serious: Yes (Death)
  Sender: FDA-Public Use
  Company Number: 2014-US-011253

PATIENT
  Age: 61 Year
  Sex: Female

DRUGS (1)
  1. XYREM [Suspect]
     Active Substance: SODIUM OXYBATE
     Indication: INSOMNIA
     Route: 048
     Dates: start: 201309, end: 2013

REACTIONS (6)
  - Nervousness [None]
  - Insomnia [None]
  - Off label use [None]
  - Alcohol poisoning [None]
  - Malaise [None]
  - Feeling abnormal [None]

NARRATIVE: CASE EVENT DATE: 20140319
